FAERS Safety Report 7591523-5 (Version None)
Quarter: 2011Q2

REPORT INFORMATION
  Report Type: 
  Country: None (occurrence: None)
  Receive Date: 20110627
  Receipt Date: 20110616
  Transmission Date: 20111010
  Serious: Yes (Death, Other)
  Sender: FDA-Public Use
  Company Number: PRED20110034

PATIENT
  Age: 52 Year
  Sex: Male

DRUGS (4)
  1. VINCRISTINE [Suspect]
     Indication: B-CELL LYMPHOMA
  2. RITUXIMAB (RITUXIMAB) [Suspect]
     Indication: B-CELL LYMPHOMA
  3. CYCLOPHOSPHAMIDE [Suspect]
     Indication: B-CELL LYMPHOMA
  4. PREDNISONE [Suspect]
     Indication: B-CELL LYMPHOMA

REACTIONS (3)
  - HEPATIC FAILURE [None]
  - HEPATITIS B [None]
  - DISEASE RECURRENCE [None]
